FAERS Safety Report 8467786-0 (Version None)
Quarter: 2012Q2

REPORT INFORMATION
  Report Type: 
  Country: None (occurrence: None)
  Receive Date: 20120626
  Receipt Date: 20120620
  Transmission Date: 20120825
  Serious: Yes (Other)
  Sender: FDA-Public Use
  Company Number: US-ROCHE-1054182

PATIENT
  Sex: Female

DRUGS (4)
  1. PEGASYS [Suspect]
     Indication: HEPATITIS C
     Route: 058
     Dates: start: 20120207
  2. COPEGUS [Suspect]
  3. COPEGUS [Suspect]
     Indication: HEPATITIS C
     Dates: start: 20120207
  4. TELAPREVIR [Suspect]
     Indication: HEPATITIS C
     Dates: start: 20120207

REACTIONS (13)
  - COUGH [None]
  - HAEMOGLOBIN ABNORMAL [None]
  - RED BLOOD CELL COUNT DECREASED [None]
  - DYSPNOEA [None]
  - ABDOMINAL RIGIDITY [None]
  - LETHARGY [None]
  - PALPITATIONS [None]
  - ABDOMINAL PAIN [None]
  - WHITE BLOOD CELL COUNT DECREASED [None]
  - CONSTIPATION [None]
  - CHEST DISCOMFORT [None]
  - ASTHENIA [None]
  - DIARRHOEA [None]
